FAERS Safety Report 17112923 (Version 1)
Quarter: 2019Q4

REPORT INFORMATION
  Report Type: Spontaneous
  Country: IE (occurrence: SE)
  Receive Date: 20191204
  Receipt Date: 20191204
  Transmission Date: 20200122
  Serious: Yes (Hospitalization)
  Sender: FDA-Public Use
  Company Number: SE-AKRON, INC.-2077471

PATIENT
  Age: 37 Year
  Sex: Male

DRUGS (2)
  1. BUPRENORPHINE HCL [Suspect]
     Active Substance: BUPRENORPHINE HYDROCHLORIDE
     Route: 048
  2. PROMETHAZINE HCL [Suspect]
     Active Substance: PROMETHAZINE HYDROCHLORIDE
     Route: 048

REACTIONS (2)
  - Dysarthria [Unknown]
  - Overdose [Unknown]

NARRATIVE: CASE EVENT DATE: 20190621
